FAERS Safety Report 9932338 (Version 1)
Quarter: 2014Q1

REPORT INFORMATION
  Report Type: Spontaneous
  Country: US (occurrence: US)
  Receive Date: 20140228
  Receipt Date: 20140228
  Transmission Date: 20141002
  Serious: No
  Sender: FDA-Public Use
  Company Number: US-GLAXOSMITHKLINE-A1008009A

PATIENT
  Age: 49 Year
  Sex: Male

DRUGS (4)
  1. LAMICTAL [Suspect]
     Indication: DEPRESSION
     Route: 048
     Dates: start: 2007, end: 2008
  2. CYMBALTA [Concomitant]
  3. KLONOPIN [Concomitant]
  4. PROTOPIC [Concomitant]

REACTIONS (4)
  - Rash pruritic [Not Recovered/Not Resolved]
  - Rash pustular [Unknown]
  - Pain [Unknown]
  - Skin ulcer haemorrhage [Unknown]
